FAERS Safety Report 19369945 (Version 2)
Quarter: 2022Q1

REPORT INFORMATION
  Report Type: Spontaneous
  Country: US (occurrence: US)
  Receive Date: 20210603
  Receipt Date: 20220104
  Transmission Date: 20220423
  Serious: Yes (Other)
  Sender: FDA-Public Use
  Company Number: US-GILEAD-2021-0534071

PATIENT
  Age: 57 Year
  Sex: Female
  Weight: 85.275 kg

DRUGS (56)
  1. ATRIPLA [Suspect]
     Active Substance: EFAVIRENZ\EMTRICITABINE\TENOFOVIR DISOPROXIL FUMARATE
     Indication: HIV infection
     Dosage: UNK
     Route: 048
     Dates: start: 2003, end: 2006
  2. ATRIPLA [Suspect]
     Active Substance: EFAVIRENZ\EMTRICITABINE\TENOFOVIR DISOPROXIL FUMARATE
     Dosage: UNK
     Route: 048
     Dates: start: 2006, end: 2014
  3. ATRIPLA [Suspect]
     Active Substance: EFAVIRENZ\EMTRICITABINE\TENOFOVIR DISOPROXIL FUMARATE
     Dosage: UNK
     Route: 048
     Dates: start: 2014, end: 2018
  4. GENVOYA [Concomitant]
     Active Substance: COBICISTAT\ELVITEGRAVIR\EMTRICITABINE\TENOFOVIR ALAFENAMIDE FUMARATE
  5. ACETAMINOPHEN [Concomitant]
     Active Substance: ACETAMINOPHEN
  6. ALBUTEROL [Concomitant]
     Active Substance: ALBUTEROL
  7. ALBUTEROL SULFATE [Concomitant]
     Active Substance: ALBUTEROL SULFATE
  8. AMOXICILLIN [Concomitant]
     Active Substance: AMOXICILLIN
  9. ARTIFICIAL TEARS [Concomitant]
     Active Substance: GLYCERIN\HYPROMELLOSES\POLYETHYLENE GLYCOL 400
  10. ATORVASTATIN [Concomitant]
     Active Substance: ATORVASTATIN
  11. BISACODYL [Concomitant]
     Active Substance: BISACODYL
  12. CHANTIX [Concomitant]
     Active Substance: VARENICLINE TARTRATE
  13. CICLOPIROX OLAMINE [Concomitant]
     Active Substance: CICLOPIROX OLAMINE
  14. CYCLOBENZAPRINE [Concomitant]
     Active Substance: CYCLOBENZAPRINE
  15. DICLOFENAC [Concomitant]
     Active Substance: DICLOFENAC
  16. DIPHENHYDRAMINE [Concomitant]
     Active Substance: DIPHENHYDRAMINE
  17. DOXEPIN [Concomitant]
     Active Substance: DOXEPIN
  18. BENADRYL [Concomitant]
     Active Substance: DIPHENHYDRAMINE HYDROCHLORIDE
  19. ESZOPICLONE [Concomitant]
     Active Substance: ESZOPICLONE
  20. CEFIXIME [Concomitant]
     Active Substance: CEFIXIME
  21. FLUTICASONE [Concomitant]
     Active Substance: FLUTICASONE
  22. FLONASE [Concomitant]
     Active Substance: FLUTICASONE PROPIONATE
  23. GABAPENTIN [Concomitant]
     Active Substance: GABAPENTIN
  24. HYDROCODONE [Concomitant]
     Active Substance: HYDROCODONE
  25. HYDROXYZINE [Concomitant]
     Active Substance: HYDROXYZINE HYDROCHLORIDE
  26. INCRUSE ELLIPTA [Concomitant]
     Active Substance: UMECLIDINIUM BROMIDE
  27. LIDOCAINE [Concomitant]
     Active Substance: LIDOCAINE
  28. LUNESTA [Concomitant]
     Active Substance: ESZOPICLONE
  29. MAGNESIUM CITRATE [Concomitant]
     Active Substance: MAGNESIUM CITRATE
  30. MELOXICAM [Concomitant]
     Active Substance: MELOXICAM
  31. MIRTAZAPINE [Concomitant]
     Active Substance: MIRTAZAPINE
  32. VITAMINS NOS [Concomitant]
     Active Substance: VITAMINS
  33. NAPROXEN [Concomitant]
     Active Substance: NAPROXEN
  34. NICOTINE [Concomitant]
     Active Substance: NICOTINE
  35. OLOPATADINE [Concomitant]
     Active Substance: OLOPATADINE
  36. ONDANSETRON [Concomitant]
     Active Substance: ONDANSETRON
  37. OXYCODONE [Concomitant]
     Active Substance: OXYCODONE
  38. APAP [Concomitant]
     Active Substance: ACETAMINOPHEN
  39. OYSCO D [CALCIUM;VITAMIN D NOS] [Concomitant]
  40. OYSTER SHELL [Concomitant]
     Active Substance: OSTREA EDULIS SHELL
  41. HIGH DENSITY POLYETHYLENE [Concomitant]
     Active Substance: HIGH DENSITY POLYETHYLENE
  42. SPIRIVA [Concomitant]
     Active Substance: TIOTROPIUM BROMIDE MONOHYDRATE
  43. SPIRIVA [Concomitant]
     Active Substance: TIOTROPIUM BROMIDE MONOHYDRATE
  44. SPIRIVA RESPIMAT [Concomitant]
     Active Substance: TIOTROPIUM BROMIDE
  45. TOPAMAX [Concomitant]
     Active Substance: TOPIRAMATE
  46. TOPIRAMATE [Concomitant]
     Active Substance: TOPIRAMATE
  47. TRAZODONE [Concomitant]
     Active Substance: TRAZODONE HYDROCHLORIDE
  48. VALACYCLOVIR [Concomitant]
     Active Substance: VALACYCLOVIR HYDROCHLORIDE
  49. VENLAFAXINE HCL [Concomitant]
     Active Substance: VENLAFAXINE HYDROCHLORIDE
  50. VENTOLIN [Concomitant]
     Active Substance: ALBUTEROL SULFATE
  51. VITAMIN D NOS [Concomitant]
     Active Substance: VITAMIN D NOS
  52. VITAMIN D3 [Concomitant]
     Active Substance: CHOLECALCIFEROL
  53. DICLOFENAC [Concomitant]
     Active Substance: DICLOFENAC
  54. ZOFRAN [Concomitant]
     Active Substance: ONDANSETRON HYDROCHLORIDE
  55. ZOLPIDEM [Concomitant]
     Active Substance: ZOLPIDEM TARTRATE
  56. ZOLPIDEM TARTRATE [Concomitant]
     Active Substance: ZOLPIDEM TARTRATE

REACTIONS (11)
  - Multiple fractures [Unknown]
  - Osteopenia [Not Recovered/Not Resolved]
  - Pain [Not Recovered/Not Resolved]
  - Emotional distress [Not Recovered/Not Resolved]
  - Anxiety [Not Recovered/Not Resolved]
  - Anhedonia [Not Recovered/Not Resolved]
  - Avulsion fracture [Recovered/Resolved]
  - Foot fracture [Recovered/Resolved]
  - General physical health deterioration [Not Recovered/Not Resolved]
  - Depressed mood [Not Recovered/Not Resolved]
  - Depression [Unknown]

NARRATIVE: CASE EVENT DATE: 20151105
